FAERS Safety Report 23110785 (Version 1)
Quarter: 2023Q4

REPORT INFORMATION
  Report Type: Spontaneous
  Country: JP (occurrence: JP)
  Receive Date: 20231026
  Receipt Date: 20231026
  Transmission Date: 20240110
  Serious: Yes (Other)
  Sender: FDA-Public Use
  Company Number: JP-SUN PHARMACEUTICAL INDUSTRIES LTD-2023R1-414491

PATIENT
  Age: 57 Year
  Sex: Female

DRUGS (2)
  1. FEBUXOSTAT [Suspect]
     Active Substance: FEBUXOSTAT
     Indication: Tumour lysis syndrome
     Dosage: 60 MILLIGRAM, DAILY
     Route: 065
  2. CYCLOPHOSPHAMIDE [Concomitant]
     Active Substance: CYCLOPHOSPHAMIDE
     Indication: Chemotherapy
     Dosage: 200 MILLIGRAM/SQ. METER

REACTIONS (2)
  - Drug ineffective [Unknown]
  - Crystalluria [Unknown]
